FAERS Safety Report 5283047-5 (Version None)
Quarter: 2007Q1

REPORT INFORMATION
  Report Type: 
  Country: None (occurrence: None)
  Receive Date: 20070327
  Receipt Date: 20070322
  Transmission Date: 20070707
  Serious: Yes (Disabling)
  Sender: FDA-Public Use
  Company Number: 13208285

PATIENT
  Age: 41 Year
  Sex: Male

DRUGS (3)
  1. REVIA [Suspect]
     Indication: ALCOHOLISM
     Dosage: 50 MILLIGRAM 1/1 DAY ORAL
     Route: 048
     Dates: start: 20050615
  2. EQUANIL [Suspect]
     Dates: start: 20050615
  3. DISULFIRAM [Suspect]
     Dates: start: 20050615, end: 20051006

REACTIONS (5)
  - AMBLYOPIA [None]
  - HEADACHE [None]
  - NEUROPATHY [None]
  - TUNNEL VISION [None]
  - VISUAL ACUITY REDUCED [None]
